FAERS Safety Report 19517552 (Version 2)
Quarter: 2021Q3

REPORT INFORMATION
  Report Type: Spontaneous
  Country: JP (occurrence: JP)
  Receive Date: 20210712
  Receipt Date: 20210817
  Transmission Date: 20211014
  Serious: Yes (Hospitalization)
  Sender: FDA-Public Use
  Company Number: JP-JNJFOC-20210719070

PATIENT
  Age: 62 Year
  Sex: Male
  Weight: 51.7 kg

DRUGS (7)
  1. XARELTO [Suspect]
     Active Substance: RIVAROXABAN
     Indication: TUMOUR THROMBOSIS
     Dosage: 15 MG, QD
     Route: 048
     Dates: start: 20210204, end: 20210218
  2. SUNRYTHM [Concomitant]
     Active Substance: PILSICAINIDE HYDROCHLORIDE
  3. MIYA?BM [Concomitant]
     Active Substance: CLOSTRIDIUM BUTYRICUM SPORES STRAIN M-55
  4. NEXIUM [ESOMEPRAZOLE MAGNESIUM TRIHYDRATE] [Concomitant]
  5. NALDEMEDINE TOSILATE [Concomitant]
     Active Substance: NALDEMEDINE TOSYLATE
  6. OXYCODONE [Concomitant]
     Active Substance: OXYCODONE
  7. CALONAL [Suspect]
     Active Substance: ACETAMINOPHEN
     Indication: PAIN
     Dosage: 400 MG, TID
     Route: 048
     Dates: start: 20201225, end: 20210218

REACTIONS (1)
  - Hepatic function abnormal [Recovered/Resolved]

NARRATIVE: CASE EVENT DATE: 20210218
